FAERS Safety Report 7481391-4 (Version None)
Quarter: 2011Q2

REPORT INFORMATION
  Report Type: 
  Country: None (occurrence: None)
  Receive Date: 20110516
  Receipt Date: 20110509
  Transmission Date: 20111010
  Serious: Yes (Death, Hospitalization, Other)
  Sender: FDA-Public Use
  Company Number: US-ELI_LILLY_AND_COMPANY-US201102001818

PATIENT
  Sex: Female

DRUGS (4)
  1. EFFIENT [Suspect]
     Dosage: 10 (UNKNOWN UNITS), QD
     Route: 048
     Dates: start: 20110110, end: 20110114
  2. PLAVIX [Concomitant]
     Dosage: UNK, UNKNOWN
     Route: 065
  3. PRADAXA [Concomitant]
     Dosage: UNK, UNKNOWN
     Route: 065
  4. COUMADIN [Concomitant]
     Dosage: UNK, UNKNOWN
     Route: 065

REACTIONS (3)
  - HAEMORRHAGE [None]
  - HAEMATOMA [None]
  - CARDIAC ARREST [None]
